FAERS Safety Report 8169461-9 (Version None)
Quarter: 2012Q1

REPORT INFORMATION
  Report Type: 
  Country: None (occurrence: None)
  Receive Date: 20120222
  Receipt Date: 20120207
  Transmission Date: 20120608
  Serious: Yes (Death, Hospitalization)
  Sender: FDA-Public Use
  Company Number: FK201200374

PATIENT
  Age: 55 Year
  Sex: Male

DRUGS (3)
  1. OXALIPLATIN [Suspect]
     Indication: COLON CANCER METASTATIC
  2. FLUOROURACIL [Concomitant]
  3. LEUCOVORINE (LEUCOVORINE)(LEUCOVORINE) [Concomitant]

REACTIONS (7)
  - PULMONARY FIBROSIS [None]
  - COUGH [None]
  - RESPIRATORY FAILURE [None]
  - DYSPNOEA [None]
  - NEUTROPENIA [None]
  - CREPITATIONS [None]
  - MULTI-ORGAN FAILURE [None]
